FAERS Safety Report 10283787 (Version 3)
Quarter: 2014Q3

REPORT INFORMATION
  Report Type: Spontaneous
  Country: US (occurrence: None)
  Receive Date: 20140703
  Receipt Date: 20140815
  Transmission Date: 20150326
  Serious: Yes (Other)
  Sender: FDA-Public Use
  Company Number: UNT-2014-000616

PATIENT
  Age: 45 Year
  Sex: Female
  Weight: 73.5 kg

DRUGS (3)
  1. REMODULIN [Suspect]
     Active Substance: TREPROSTINIL
     Indication: COR PULMONALE CHRONIC
     Route: 058
     Dates: start: 20131211
  2. LETAIRIS [Suspect]
     Active Substance: AMBRISENTAN
     Indication: PULMONARY HYPERTENSION
     Route: 048
     Dates: start: 20110209
  3. REVATIO (SILDENAFIL CITRATE) [Concomitant]

REACTIONS (21)
  - Dizziness [None]
  - Cerebrovascular accident [None]
  - Chills [None]
  - Oedema peripheral [None]
  - Infusion site erythema [None]
  - Chest pain [None]
  - Pyrexia [None]
  - Fall [None]
  - Bladder operation [None]
  - Visual impairment [None]
  - Blood pressure decreased [None]
  - Hypotension [None]
  - Hyperventilation [None]
  - Malaise [None]
  - Infusion site pain [None]
  - Infusion site induration [None]
  - Blindness [None]
  - Loss of consciousness [None]
  - Pain in extremity [None]
  - Infusion site swelling [None]
  - Injection site discharge [None]

NARRATIVE: CASE EVENT DATE: 20140305
